FAERS Safety Report 11450667 (Version 1)
Quarter: 2015Q3

REPORT INFORMATION
  Report Type: Spontaneous
  Country: US (occurrence: None)
  Receive Date: 20150902
  Receipt Date: 20150902
  Transmission Date: 20151125
  Serious: No
  Sender: FDA-Public Use
  Company Number: None

PATIENT
  Age: 42 Year
  Sex: Male
  Weight: 86.18 kg

DRUGS (1)
  1. CHANTIX [Suspect]
     Active Substance: VARENICLINE TARTRATE
     Indication: TOBACCO USER
     Dates: start: 20150301, end: 20150531

REACTIONS (3)
  - Irritability [None]
  - Nervous system disorder [None]
  - Memory impairment [None]

NARRATIVE: CASE EVENT DATE: 20150301
